FAERS Safety Report 11093280 (Version 1)
Quarter: 2015Q2

REPORT INFORMATION
  Report Type: Spontaneous
  Country: FR (occurrence: FR)
  Receive Date: 20150506
  Receipt Date: 20150506
  Transmission Date: 20150821
  Serious: Yes (Hospitalization)
  Sender: FDA-Public Use
  Company Number: FR-GALDERMA-FR15002449

PATIENT
  Age: 15 Year
  Sex: Female

DRUGS (2)
  1. DIFFERIN [Suspect]
     Active Substance: ADAPALENE
     Indication: ACNE
     Route: 061
     Dates: start: 20150401
  2. TETRALYSAL [Suspect]
     Active Substance: LYMECYCLINE
     Indication: ACNE
     Route: 048
     Dates: start: 20150401, end: 20150413

REACTIONS (2)
  - Agranulocytosis [Not Recovered/Not Resolved]
  - Influenza like illness [Not Recovered/Not Resolved]

NARRATIVE: CASE EVENT DATE: 20150411
